FAERS Safety Report 9120021 (Version 1)
Quarter: 2013Q1

REPORT INFORMATION
  Report Type: Spontaneous
  Country: ES (occurrence: ES)
  Receive Date: 20130226
  Receipt Date: 20130226
  Transmission Date: 20140127
  Serious: Yes (Other)
  Sender: FDA-Public Use
  Company Number: ES-009507513-1302ESP003375

PATIENT
  Age: 51 Year
  Sex: Female

DRUGS (5)
  1. ASENAPINE MALEATE-BIPOLAR DISORDER [Suspect]
     Indication: DEPRESSION
     Dosage: 10 MG, QD
     Route: 060
  2. DULOXETINE HYDROCHLORIDE [Concomitant]
     Dosage: 60 MG, QD
  3. LAMOTRIGINE [Concomitant]
     Indication: AFFECTIVE DISORDER
     Dosage: 1 DF, QD
  4. QUETIAPINE FUMARATE [Concomitant]
  5. DIAZEPAM [Concomitant]
     Route: 030

REACTIONS (4)
  - Loss of consciousness [Recovered/Resolved]
  - Fall [Recovered/Resolved]
  - Hypotension [Recovered/Resolved]
  - Off label use [Unknown]
